FAERS Safety Report 11619535 (Version 2)
Quarter: 2016Q1

REPORT INFORMATION
  Report Type: Spontaneous
  Country: US (occurrence: US)
  Receive Date: 20151012
  Receipt Date: 20160113
  Transmission Date: 20160525
  Serious: Yes (Hospitalization, Other)
  Sender: FDA-Public Use
  Company Number: US-GLAXOSMITHKLINE-US2015142086

PATIENT
  Age: 85 Year
  Sex: Male

DRUGS (23)
  1. VITAMIN D [Concomitant]
     Active Substance: CHOLECALCIFEROL
  2. DOXAZOSIN [Concomitant]
     Active Substance: DOXAZOSIN\DOXAZOSIN MESYLATE
  3. OMEPRAZOLE. [Concomitant]
     Active Substance: OMEPRAZOLE
  4. PRAVASTATIN [Concomitant]
     Active Substance: PRAVASTATIN\PRAVASTATIN SODIUM
  5. FLOVENT DISKUS [Suspect]
     Active Substance: FLUTICASONE PROPIONATE
     Indication: CHRONIC OBSTRUCTIVE PULMONARY DISEASE
     Dosage: UNK
     Route: 055
  6. VITAMIN B12 [Concomitant]
     Active Substance: CYANOCOBALAMIN
  7. ALBUTEROL SULFATE. [Concomitant]
     Active Substance: ALBUTEROL SULFATE
  8. ALLOPURINOL. [Concomitant]
     Active Substance: ALLOPURINOL
  9. FIBER [Concomitant]
     Active Substance: PSYLLIUM HUSK
  10. MULTI VIT [Concomitant]
  11. POTASSIUM [Concomitant]
     Active Substance: POTASSIUM
  12. IPRATROPIUM BROMIDE. [Concomitant]
     Active Substance: IPRATROPIUM BROMIDE
  13. LISINOPRIL. [Concomitant]
     Active Substance: LISINOPRIL
  14. TAZTIA XT [Concomitant]
     Active Substance: DILTIAZEM HYDROCHLORIDE
  15. SEREVENT DISKUS [Suspect]
     Active Substance: SALMETEROL XINAFOATE
     Indication: CHRONIC OBSTRUCTIVE PULMONARY DISEASE
     Dosage: UNK
     Route: 055
  16. TRAMADOL. [Concomitant]
     Active Substance: TRAMADOL
  17. FUROSEMIDE. [Concomitant]
     Active Substance: FUROSEMIDE
  18. AMLODIPINE [Concomitant]
     Active Substance: AMLODIPINE BESYLATE
  19. POLYSACCHARIDE [Concomitant]
  20. TYLENOL [Concomitant]
     Active Substance: ACETAMINOPHEN
  21. VITAMIN C [Concomitant]
     Active Substance: ASCORBIC ACID
  22. SYNTHROID [Concomitant]
     Active Substance: LEVOTHYROXINE SODIUM
  23. CELEXA [Concomitant]
     Active Substance: CITALOPRAM HYDROBROMIDE

REACTIONS (6)
  - Pneumonia [Recovered/Resolved]
  - Pyrexia [Recovering/Resolving]
  - Fatigue [Recovering/Resolving]
  - Asthenia [Not Recovered/Not Resolved]
  - Cerebrovascular accident [Recovered/Resolved with Sequelae]
  - Tremor [Recovering/Resolving]

NARRATIVE: CASE EVENT DATE: 2014
